FAERS Safety Report 17622313 (Version 3)
Quarter: 2020Q2

REPORT INFORMATION
  Report Type: Report from Study
  Country: BE (occurrence: BE)
  Receive Date: 20200403
  Receipt Date: 20200513
  Transmission Date: 20200713
  Serious: Yes (Hospitalization, Other)
  Sender: FDA-Public Use
  Company Number: BE-ROCHE-2570186

PATIENT
  Age: 63 Year
  Sex: Male
  Weight: 67 kg

DRUGS (15)
  1. CYMEVENE [GANCICLOVIR] [Suspect]
     Active Substance: GANCICLOVIR
     Route: 065
     Dates: start: 20190731
  2. CYTARABINE. [Suspect]
     Active Substance: CYTARABINE
     Indication: ACUTE MYELOID LEUKAEMIA
     Route: 065
     Dates: start: 20190731
  3. MARIBAVIR [Suspect]
     Active Substance: MARIBAVIR
     Indication: CYTOMEGALOVIRUS INFECTION REACTIVATION
     Dosage: 2 X 2 CO/DAY; 2 X 400 MG
     Route: 065
     Dates: start: 20200109, end: 20200118
  4. AMBISOME [Concomitant]
     Active Substance: AMPHOTERICIN B
     Indication: BRONCHOPULMONARY ASPERGILLOSIS
     Route: 065
     Dates: start: 20190903
  5. CYMEVENE [GANCICLOVIR] [Suspect]
     Active Substance: GANCICLOVIR
     Indication: CYTOMEGALOVIRUS INFECTION REACTIVATION
     Route: 065
     Dates: start: 20200118, end: 20200226
  6. CYMEVENE [GANCICLOVIR] [Suspect]
     Active Substance: GANCICLOVIR
     Route: 065
     Dates: start: 20191211, end: 20200213
  7. IDARUBICIN [Suspect]
     Active Substance: IDARUBICIN
     Indication: ACUTE MYELOID LEUKAEMIA
     Route: 065
     Dates: start: 20190731
  8. VORICONAZOLE. [Concomitant]
     Active Substance: VORICONAZOLE
     Indication: BRONCHOPULMONARY ASPERGILLOSIS
     Route: 065
     Dates: start: 20190817
  9. FLUDARABINE [Concomitant]
     Active Substance: FLUDARABINE PHOSPHATE
     Indication: CHEMOTHERAPY
     Route: 065
     Dates: start: 20191211
  10. TACROLIMUS. [Concomitant]
     Active Substance: TACROLIMUS
  11. VALCYTE [Suspect]
     Active Substance: VALGANCICLOVIR HYDROCHLORIDE
     Route: 065
     Dates: start: 20200313, end: 20200326
  12. VALCYTE [Suspect]
     Active Substance: VALGANCICLOVIR HYDROCHLORIDE
     Route: 065
     Dates: start: 20200327, end: 20200404
  13. DAUNORUBICIN [Concomitant]
     Active Substance: DAUNORUBICIN
     Route: 065
     Dates: start: 20191007
  14. VALCYTE [Suspect]
     Active Substance: VALGANCICLOVIR HYDROCHLORIDE
     Indication: CYTOMEGALOVIRUS INFECTION REACTIVATION
     Dosage: 2 X 400 MG
     Route: 065
     Dates: start: 20200109, end: 20200118
  15. AMPHOTERICINE B [Concomitant]
     Active Substance: AMPHOTERICIN B
     Route: 065
     Dates: start: 20190903

REACTIONS (10)
  - Drug eruption [Recovered/Resolved]
  - Escherichia sepsis [Unknown]
  - Off label use [Unknown]
  - Intentional product use issue [Unknown]
  - Cytomegalovirus infection reactivation [Recovered/Resolved]
  - Infectious pleural effusion [Unknown]
  - Febrile neutropenia [Recovered/Resolved]
  - Cytomegalovirus infection reactivation [Unknown]
  - Bronchopulmonary aspergillosis [Unknown]
  - Neurological decompensation [Recovered/Resolved]

NARRATIVE: CASE EVENT DATE: 20190731
